FAERS Safety Report 10256208 (Version 2)
Quarter: 2014Q2

REPORT INFORMATION
  Report Type: Spontaneous
  Country: GB (occurrence: GB)
  Receive Date: 20140624
  Receipt Date: 20140624
  Transmission Date: 20141212
  Serious: Yes (Other)
  Sender: FDA-Public Use
  Company Number: GB-BAXTER-2014BAX027026

PATIENT
  Age: 76 Year
  Sex: Male
  Weight: 87 kg

DRUGS (4)
  1. SODIUM CHLORIDE INTRAVENOUS INFUSION BP 0.9%W/V [Suspect]
     Indication: MEDICATION DILUTION
     Route: 065
  2. FLUOROURACIL [Suspect]
     Indication: PRODUCT USED FOR UNKNOWN INDICATION
     Route: 065
  3. PEGFILGRASTIM [Concomitant]
     Indication: PRODUCT USED FOR UNKNOWN INDICATION
     Route: 058
     Dates: start: 20140510
  4. FOLIC ACID [Concomitant]
     Indication: PRODUCT USED FOR UNKNOWN INDICATION
     Route: 042
     Dates: start: 20140510

REACTIONS (5)
  - Nausea [Recovered/Resolved]
  - Incorrect drug administration rate [Recovered/Resolved]
  - Nail disorder [Recovering/Resolving]
  - Flushing [Recovered/Resolved]
  - Dizziness [Recovered/Resolved]
